FAERS Safety Report 8468790-9 (Version None)
Quarter: 2012Q2

REPORT INFORMATION
  Report Type: 
  Country: None (occurrence: None)
  Receive Date: 20120626
  Receipt Date: 20120611
  Transmission Date: 20120825
  Serious: Yes (Other)
  Sender: FDA-Public Use
  Company Number: FI-WATSON-2012-10559

PATIENT
  Age: 55 Year
  Sex: Male

DRUGS (3)
  1. CARBIDOPA + LEVODOPA [Suspect]
     Indication: PARKINSON'S DISEASE
     Dosage: 100/25-200/50 MG, DAILY
     Route: 065
     Dates: start: 20040101
  2. CABERGOLINE [Suspect]
     Indication: PARKINSON'S DISEASE
     Dosage: 1-2 MG, DAILY
     Route: 065
     Dates: start: 20020101
  3. SELEGILINE [Suspect]
     Indication: PARKINSON'S DISEASE
     Dosage: 5 MG, DAILY
     Route: 065
     Dates: start: 20010101

REACTIONS (2)
  - IMPULSIVE BEHAVIOUR [None]
  - THERAPEUTIC RESPONSE UNEXPECTED [None]
